FAERS Safety Report 6813790-5 (Version None)
Quarter: 2010Q3

REPORT INFORMATION
  Report Type: 
  Country: None (occurrence: None)
  Receive Date: 20100701
  Receipt Date: 20100621
  Transmission Date: 20110219
  Serious: Yes (Hospitalization)
  Sender: FDA-Public Use
  Company Number: IT-ABBOTT-10P-083-0652979-00

PATIENT
  Sex: Male

DRUGS (3)
  1. MACLADIN TM TABLETS [Suspect]
     Indication: BRONCHITIS
     Dosage: 1 GRAM DAILY
     Route: 048
     Dates: start: 20100608, end: 20100613
  2. AUGMENTIN '125' [Concomitant]
     Indication: BRONCHITIS
     Dosage: 2 GRAMS DAILY
     Route: 048
  3. NAPRILENE [Concomitant]
     Indication: PRODUCT USED FOR UNKNOWN INDICATION

REACTIONS (2)
  - DYSPNOEA [None]
  - URTICARIA [None]
